FAERS Safety Report 5577247-4 (Version None)
Quarter: 2007Q4

REPORT INFORMATION
  Report Type: 
  Country: None (occurrence: None)
  Receive Date: 20071130
  Receipt Date: 20070924
  Transmission Date: 20080405
  Serious: No
  Sender: FDA-Public Use
  Company Number: US200709005752

PATIENT
  Age: 81 Year
  Sex: Male
  Weight: 104.3 kg

DRUGS (5)
  1. BYETTA [Suspect]
     Indication: TYPE 2 DIABETES MELLITUS
     Dosage: 5 UG, 2/D, SUBCUTANEOUS
     Route: 058
     Dates: start: 20070919
  2. METFORMIN (METFORMIN) TABLET [Concomitant]
  3. AMARYL [Concomitant]
  4. SULFADINE (SULFADIMIDINE) TABLET [Concomitant]
  5. IMURAN [Concomitant]

REACTIONS (7)
  - ABDOMINAL DISTENSION [None]
  - ABDOMINAL PAIN [None]
  - BLOOD GLUCOSE DECREASED [None]
  - DECREASED APPETITE [None]
  - FLATULENCE [None]
  - HYPERHIDROSIS [None]
  - NERVOUSNESS [None]
